FAERS Safety Report 13720695 (Version 1)
Quarter: 2017Q3

REPORT INFORMATION
  Report Type: Spontaneous
  Country: US (occurrence: US)
  Receive Date: 20170705
  Receipt Date: 20170705
  Transmission Date: 20171127
  Serious: Yes (Hospitalization, Other)
  Sender: FDA-Public Use
  Company Number: None

PATIENT
  Age: 48 Year
  Sex: Female
  Weight: 53.57 kg

DRUGS (2)
  1. MIRENA [Suspect]
     Active Substance: LEVONORGESTREL
     Indication: CONTRACEPTION
     Dosage: 1    1
     Route: 015
     Dates: start: 20161212, end: 20170109
  2. MIRENA [Suspect]
     Active Substance: LEVONORGESTREL
     Indication: CONTRACEPTION
     Dosage: 1 1
     Route: 015
     Dates: start: 20170109, end: 20170307

REACTIONS (3)
  - Uterine perforation [None]
  - Abdominal pain [None]
  - Device dislocation [None]

NARRATIVE: CASE EVENT DATE: 20170307
